FAERS Safety Report 9298581 (Version 5)
Quarter: 2014Q1

REPORT INFORMATION
  Report Type: Report from Study
  Country: NO (occurrence: NO)
  Receive Date: 20130520
  Receipt Date: 20140221
  Transmission Date: 20141002
  Serious: Yes (Death, Hospitalization)
  Sender: FDA-Public Use
  Company Number: NO-CELGENEUS-122-21880-13050999

PATIENT
  Age: 71 Year
  Sex: Female
  Weight: 48 kg

DRUGS (36)
  1. REVLIMID [Suspect]
     Indication: PLASMA CELL MYELOMA
     Dosage: 15 MILLIGRAM
     Route: 048
     Dates: start: 20121128, end: 20121226
  2. VELCADE [Suspect]
     Indication: PLASMA CELL MYELOMA
     Dosage: 1.9 MILLIGRAM/SQ. METER
     Route: 041
     Dates: start: 20110207, end: 20110610
  3. VELCADE [Suspect]
     Dosage: .1857 MILLIGRAM
     Route: 041
     Dates: start: 20110617, end: 20121113
  4. DEXAMETHASONE [Suspect]
     Indication: PLASMA CELL MYELOMA
     Route: 048
     Dates: start: 20110207, end: 20110610
  5. DEXAMETHASONE [Suspect]
     Indication: PROPHYLAXIS
     Dosage: 5.1429 MILLIGRAM
     Route: 048
     Dates: start: 20110617, end: 20121113
  6. DEXAMETHASONE [Suspect]
     Dosage: 2.8571 MILLIGRAM
     Route: 048
     Dates: start: 20130424, end: 20130523
  7. ASPIRINE [Concomitant]
     Indication: ARTERIOSCLEROSIS
     Route: 065
  8. LEVAXIN [Concomitant]
     Indication: HYPOTHYROIDISM
     Dosage: 50 MICROGRAM
     Route: 048
     Dates: end: 20130523
  9. SAROTEX [Concomitant]
     Indication: INSOMNIA
     Dosage: 25 MILLIGRAM
     Route: 048
     Dates: end: 20130515
  10. SAROTEX [Concomitant]
     Dosage: 50 MILLIGRAM
     Route: 048
     Dates: start: 20130516, end: 20130523
  11. TARGINIQ [Concomitant]
     Indication: PAIN
     Dosage: 10 MILLIGRAM
     Route: 048
     Dates: start: 201212, end: 20130513
  12. TARGINIQ [Concomitant]
     Dosage: 30 MILLIGRAM
     Route: 048
     Dates: start: 20130514, end: 20130523
  13. PARACETAMOL [Concomitant]
     Indication: PAIN
     Dosage: 4 GRAM
     Route: 041
  14. PHENERGAN [Concomitant]
     Indication: PRURITUS
     Dosage: 25 MILLIGRAM
     Route: 048
     Dates: end: 20130523
  15. LIPITOR [Concomitant]
     Indication: HYPERCHOLESTEROLAEMIA
     Dosage: 40 MILLIGRAM
     Route: 048
     Dates: end: 20130523
  16. SOMAC [Concomitant]
     Indication: DYSPEPSIA
     Dosage: 40 MILLIGRAM
     Route: 048
     Dates: end: 20130523
  17. ATARAX [Concomitant]
     Indication: PRURITUS
     Dosage: 70 MILLIGRAM
     Route: 048
     Dates: start: 20130422, end: 20130515
  18. ATARAX [Concomitant]
     Dosage: 60 MILLIGRAM
     Route: 048
     Dates: start: 20130516, end: 20130522
  19. TRIATEC [Concomitant]
     Indication: CARDIOVASCULAR DISORDER
     Dosage: 1.25 MILLIGRAM
     Route: 048
     Dates: start: 20130422, end: 20130523
  20. SELO-ZOK [Concomitant]
     Indication: CARDIOVASCULAR DISORDER
     Dosage: 12.5 MILLIGRAM
     Route: 048
     Dates: end: 20130523
  21. PENICILLINE [Concomitant]
     Indication: INFECTION
     Dosage: 20 DOSAGE FORMS
     Route: 041
     Dates: start: 20130514, end: 20130514
  22. CEFOTAXIM [Concomitant]
     Indication: INFECTION
     Dosage: 6 GRAM
     Route: 041
     Dates: start: 20130514, end: 20130523
  23. DALACIN [Concomitant]
     Indication: INFECTION
     Dosage: 207360000 MILLIGRAM
     Route: 041
     Dates: start: 20130515, end: 20130523
  24. CANCIDAS [Concomitant]
     Indication: FUNGAL INFECTION
     Dosage: 50 MILLIGRAM
     Route: 041
     Dates: start: 20130518, end: 20130523
  25. BURINEX [Concomitant]
     Indication: OEDEMA
     Dosage: 1 MILLIGRAM
     Route: 041
     Dates: start: 20130522
  26. OXYNORM [Concomitant]
     Indication: PAIN
     Dosage: 40 MILLIGRAM
     Route: 048
     Dates: start: 20130206, end: 20130523
  27. SOBRIL [Concomitant]
     Indication: ANXIETY
     Dosage: 45 MILLIGRAM
     Route: 048
     Dates: end: 20130523
  28. IMOVANE [Concomitant]
     Indication: INSOMNIA
     Dosage: 7.5 MILLIGRAM
     Route: 048
     Dates: end: 20130523
  29. AFIPRAN [Concomitant]
     Indication: VOMITING
     Route: 041
     Dates: start: 20130507
  30. ATROVENT [Concomitant]
     Indication: DYSPNOEA
     Dosage: 1 DOSAGE FORMS
     Route: 065
     Dates: start: 20130522, end: 20130523
  31. VENTOLINE [Concomitant]
     Indication: DYSPNOEA
     Route: 065
     Dates: start: 20130522, end: 20130523
  32. MORPHINE [Concomitant]
     Indication: PAIN
     Dosage: 2.5-5MG
     Route: 058
     Dates: start: 20130523
  33. HALDOL [Concomitant]
     Indication: VOMITING
     Dosage: 4 MILLIGRAM
     Route: 058
     Dates: start: 20130523
  34. MIDAZOLAM [Concomitant]
     Indication: ANXIETY
     Route: 058
     Dates: start: 20130523
  35. ROBINUL [Concomitant]
     Indication: THERAPEUTIC GARGLE
     Dosage: .8 MILLIGRAM
     Route: 058
     Dates: start: 20130523
  36. FURIX [Concomitant]
     Indication: OEDEMA
     Dosage: 80 MILLIGRAM
     Route: 041
     Dates: start: 20130523

REACTIONS (1)
  - Rectal adenocarcinoma [Fatal]
